FAERS Safety Report 5771942-X (Version None)
Quarter: 2008Q2

REPORT INFORMATION
  Report Type: 
  Country: None (occurrence: None)
  Receive Date: 20080527
  Receipt Date: 20080519
  Transmission Date: 20081010
  Serious: Yes (Life-Threatening)
  Sender: FDA-Public Use
  Company Number: THYM-1000702

PATIENT
  Sex: Female

DRUGS (1)
  1. THYMOGLOBULIN [Suspect]
     Indication: TRANSPLANT
     Dosage: 1.25 MG/KG, INTRAVENOUS
     Route: 042

REACTIONS (2)
  - CYTOKINE RELEASE SYNDROME [None]
  - SHOCK [None]
